FAERS Safety Report 9734567 (Version 1)
Quarter: 2013Q4

REPORT INFORMATION
  Report Type: Spontaneous
  Country: US (occurrence: US)
  Receive Date: 20131206
  Receipt Date: 20131206
  Transmission Date: 20140711
  Serious: No
  Sender: FDA-Public Use
  Company Number: US-009507513-1311USA011594

PATIENT
  Sex: Male

DRUGS (1)
  1. PROVENTIL [Suspect]
     Indication: ASTHMA
     Dosage: TWO PUFFS EVERY FOUR TO SIX HOURS
     Route: 055
     Dates: start: 201211

REACTIONS (3)
  - Asthma [Unknown]
  - Incorrect dose administered [Unknown]
  - Product quality issue [Unknown]
